FAERS Safety Report 4357313-1 (Version None)
Quarter: 2004Q2

REPORT INFORMATION
  Report Type: 
  Country: None (occurrence: None)
  Receive Date: 20040507
  Receipt Date: 20040419
  Transmission Date: 20050107
  Serious: Yes (Hospitalization)
  Sender: FDA-Public Use
  Company Number: USA040465251

PATIENT
  Age: 73 Year
  Sex: Female

DRUGS (1)
  1. HUMULIN 70/30 [Suspect]
     Indication: DIABETES MELLITUS

REACTIONS (5)
  - ARTHROPATHY [None]
  - DIFFICULTY IN WALKING [None]
  - PAIN [None]
  - SPINAL FRACTURE [None]
  - WEIGHT INCREASED [None]
